FAERS Safety Report 17464126 (Version 1)
Quarter: 2020Q1

REPORT INFORMATION
  Report Type: Report from Study
  Country: None (occurrence: CO)
  Receive Date: 20200226
  Receipt Date: 20200226
  Transmission Date: 20200409
  Serious: Yes (Hospitalization, Other)
  Sender: FDA-Public Use
  Company Number: CO-ABBVIE-20K-036-3291979-00

PATIENT
  Age: 62 Year
  Sex: Male
  Weight: 53 kg

DRUGS (1)
  1. PARICALCITOL. [Suspect]
     Active Substance: PARICALCITOL
     Indication: HYPERPARATHYROIDISM SECONDARY
     Route: 048
     Dates: start: 20140721

REACTIONS (6)
  - Mental impairment [Recovering/Resolving]
  - Malnutrition [Recovering/Resolving]
  - Haemorrhage [Recovering/Resolving]
  - Gait disturbance [Recovering/Resolving]
  - Decreased appetite [Recovering/Resolving]
  - Cardiomegaly [Recovering/Resolving]

NARRATIVE: CASE EVENT DATE: 201906
